FAERS Safety Report 6188343-5 (Version None)
Quarter: 2009Q2

REPORT INFORMATION
  Report Type: 
  Country: None (occurrence: None)
  Receive Date: 20090513
  Receipt Date: 20090430
  Transmission Date: 20091009
  Serious: Yes (Hospitalization)
  Sender: FDA-Public Use
  Company Number: FR-AMGEN-QUU345078

PATIENT
  Sex: Female

DRUGS (10)
  1. ARANESP [Suspect]
     Indication: DIALYSIS
     Dates: start: 20080829, end: 20081223
  2. LASIX [Concomitant]
  3. RENITEC [Concomitant]
  4. FELODIPINE [Concomitant]
  5. COZAAR [Concomitant]
  6. ATENOLOL [Concomitant]
  7. ANTIHYPERTENSIVE MEDICATION NOS [Concomitant]
  8. LORAZEPAM [Concomitant]
  9. PARACETAMOL [Concomitant]
  10. AUGMENTIN '125' [Concomitant]
     Indication: DRUG USE FOR UNKNOWN INDICATION

REACTIONS (1)
  - POLYCYTHAEMIA [None]
